FAERS Safety Report 4321372-2 (Version None)
Quarter: 2004Q1

REPORT INFORMATION
  Report Type: 
  Country: None (occurrence: None)
  Receive Date: 20040322
  Receipt Date: 20030402
  Transmission Date: 20041129
  Serious: No
  Sender: FDA-Public Use
  Company Number: US-BRISTOL-MYERS SQUIBB COMPANY-12233086

PATIENT
  Age: 40 Year
  Sex: Female

DRUGS (1)
  1. MONISTAT [Suspect]
     Indication: VAGINAL MYCOSIS
     Route: 067
     Dates: start: 20030328, end: 20030328

REACTIONS (4)
  - DYSURIA [None]
  - VAGINAL BURNING SENSATION [None]
  - VAGINAL PAIN [None]
  - VAGINAL SWELLING [None]
